FAERS Safety Report 24555327 (Version 18)
Quarter: 2025Q2

REPORT INFORMATION
  Report Type: Spontaneous
  Country: GB (occurrence: GB)
  Receive Date: 20241028
  Receipt Date: 20250508
  Transmission Date: 20250716
  Serious: Yes (Other)
  Sender: ADVANZ PHARMA
  Company Number: GB-002147023-NVSC2024GB183946

PATIENT

DRUGS (430)
  1. PREDNISOLONE [Suspect]
     Active Substance: PREDNISOLONE
     Indication: Chronic spontaneous urticaria
  2. PREDNISOLONE [Suspect]
     Active Substance: PREDNISOLONE
  3. OMALIZUMAB [Suspect]
     Active Substance: OMALIZUMAB
     Indication: Chronic spontaneous urticaria
  4. OMALIZUMAB [Suspect]
     Active Substance: OMALIZUMAB
  5. OMALIZUMAB [Suspect]
     Active Substance: OMALIZUMAB
  6. OMALIZUMAB [Suspect]
     Active Substance: OMALIZUMAB
  7. OMALIZUMAB [Suspect]
     Active Substance: OMALIZUMAB
  8. OMALIZUMAB [Suspect]
     Active Substance: OMALIZUMAB
  9. OMALIZUMAB [Suspect]
     Active Substance: OMALIZUMAB
  10. OMALIZUMAB [Suspect]
     Active Substance: OMALIZUMAB
  11. OMALIZUMAB [Suspect]
     Active Substance: OMALIZUMAB
  12. OMALIZUMAB [Suspect]
     Active Substance: OMALIZUMAB
  13. OMALIZUMAB [Suspect]
     Active Substance: OMALIZUMAB
  14. OMALIZUMAB [Suspect]
     Active Substance: OMALIZUMAB
  15. CYCLOSPORINE [Suspect]
     Active Substance: CYCLOSPORINE
     Indication: Product used for unknown indication
  16. CYCLOSPORINE [Suspect]
     Active Substance: CYCLOSPORINE
  17. CYCLOSPORINE [Suspect]
     Active Substance: CYCLOSPORINE
  18. CYCLOSPORINE [Suspect]
     Active Substance: CYCLOSPORINE
  19. CYCLOSPORINE [Suspect]
     Active Substance: CYCLOSPORINE
  20. MYCOPHENOLATE MOFETIL [Suspect]
     Active Substance: MYCOPHENOLATE MOFETIL
     Indication: Product used for unknown indication
  21. MYCOPHENOLATE MOFETIL [Suspect]
     Active Substance: MYCOPHENOLATE MOFETIL
  22. AZATHIOPRINE [Suspect]
     Active Substance: AZATHIOPRINE
     Indication: Product used for unknown indication
  23. AZATHIOPRINE [Suspect]
     Active Substance: AZATHIOPRINE
  24. AZATHIOPRINE [Suspect]
     Active Substance: AZATHIOPRINE
     Indication: Product used for unknown indication
  25. RITUXIMAB [Suspect]
     Active Substance: RITUXIMAB
     Indication: Product used for unknown indication
  26. RITUXIMAB [Suspect]
     Active Substance: RITUXIMAB
  27. DAPSONE [Suspect]
     Active Substance: DAPSONE
     Indication: Product used for unknown indication
  28. DAPSONE [Suspect]
     Active Substance: DAPSONE
     Indication: Antiphospholipid syndrome
  29. IMURAN [Suspect]
     Active Substance: AZATHIOPRINE
     Indication: Product used for unknown indication
  30. IMURAN [Suspect]
     Active Substance: AZATHIOPRINE
  31. RITUXIMAB [Suspect]
     Active Substance: RITUXIMAB
     Indication: Product used for unknown indication
  32. SULFASALAZINE [Suspect]
     Active Substance: SULFASALAZINE
     Indication: Chronic spontaneous urticaria
  33. SULFASALAZINE [Suspect]
     Active Substance: SULFASALAZINE
     Indication: Autoimmune hypothyroidism
  34. DAPSONE [Suspect]
     Active Substance: DAPSONE
     Indication: Product used for unknown indication
  35. ENOXAPARIN [Concomitant]
     Active Substance: ENOXAPARIN
     Indication: Autoimmune hypothyroidism
  36. ENOXAPARIN [Concomitant]
     Active Substance: ENOXAPARIN
     Indication: Antiphospholipid syndrome
  37. ENOXAPARIN [Concomitant]
     Active Substance: ENOXAPARIN
  38. ENOXAPARIN [Concomitant]
     Active Substance: ENOXAPARIN
  39. ENOXAPARIN [Concomitant]
     Active Substance: ENOXAPARIN
  40. ENOXAPARIN [Concomitant]
     Active Substance: ENOXAPARIN
  41. ENOXAPARIN [Concomitant]
     Active Substance: ENOXAPARIN
  42. ENOXAPARIN [Concomitant]
     Active Substance: ENOXAPARIN
  43. ENOXAPARIN [Concomitant]
     Active Substance: ENOXAPARIN
  44. ENOXAPARIN [Concomitant]
     Active Substance: ENOXAPARIN
  45. ENOXAPARIN [Concomitant]
     Active Substance: ENOXAPARIN
  46. ENOXAPARIN [Concomitant]
     Active Substance: ENOXAPARIN
  47. ENOXAPARIN [Concomitant]
     Active Substance: ENOXAPARIN
  48. ENOXAPARIN [Concomitant]
     Active Substance: ENOXAPARIN
  49. ENOXAPARIN [Concomitant]
     Active Substance: ENOXAPARIN
  50. ENOXAPARIN [Concomitant]
     Active Substance: ENOXAPARIN
  51. ENOXAPARIN [Concomitant]
     Active Substance: ENOXAPARIN
  52. ENOXAPARIN [Concomitant]
     Active Substance: ENOXAPARIN
  53. ENOXAPARIN [Concomitant]
     Active Substance: ENOXAPARIN
  54. ENOXAPARIN [Concomitant]
     Active Substance: ENOXAPARIN
  55. ENOXAPARIN [Concomitant]
     Active Substance: ENOXAPARIN
  56. ENOXAPARIN [Concomitant]
     Active Substance: ENOXAPARIN
  57. ENOXAPARIN [Concomitant]
     Active Substance: ENOXAPARIN
  58. ENOXAPARIN [Concomitant]
     Active Substance: ENOXAPARIN
  59. ENOXAPARIN [Concomitant]
     Active Substance: ENOXAPARIN
  60. ENOXAPARIN [Concomitant]
     Active Substance: ENOXAPARIN
  61. ENOXAPARIN [Concomitant]
     Active Substance: ENOXAPARIN
  62. ENOXAPARIN [Concomitant]
     Active Substance: ENOXAPARIN
  63. ENOXAPARIN [Concomitant]
     Active Substance: ENOXAPARIN
  64. ENOXAPARIN [Concomitant]
     Active Substance: ENOXAPARIN
  65. ENOXAPARIN [Concomitant]
     Active Substance: ENOXAPARIN
  66. ENOXAPARIN [Concomitant]
     Active Substance: ENOXAPARIN
  67. ENOXAPARIN [Concomitant]
     Active Substance: ENOXAPARIN
  68. ENOXAPARIN [Concomitant]
     Active Substance: ENOXAPARIN
  69. ENOXAPARIN [Concomitant]
     Active Substance: ENOXAPARIN
  70. ENOXAPARIN [Concomitant]
     Active Substance: ENOXAPARIN
  71. ENOXAPARIN [Concomitant]
     Active Substance: ENOXAPARIN
  72. ENOXAPARIN [Concomitant]
     Active Substance: ENOXAPARIN
  73. ENOXAPARIN [Concomitant]
     Active Substance: ENOXAPARIN
  74. ENOXAPARIN [Concomitant]
     Active Substance: ENOXAPARIN
  75. ENOXAPARIN [Concomitant]
     Active Substance: ENOXAPARIN
  76. ENOXAPARIN [Concomitant]
     Active Substance: ENOXAPARIN
  77. ENOXAPARIN [Concomitant]
     Active Substance: ENOXAPARIN
  78. ENOXAPARIN [Concomitant]
     Active Substance: ENOXAPARIN
  79. ENOXAPARIN [Concomitant]
     Active Substance: ENOXAPARIN
  80. ENOXAPARIN [Concomitant]
     Active Substance: ENOXAPARIN
  81. ENOXAPARIN [Concomitant]
     Active Substance: ENOXAPARIN
  82. ENOXAPARIN [Concomitant]
     Active Substance: ENOXAPARIN
  83. ENOXAPARIN [Concomitant]
     Active Substance: ENOXAPARIN
  84. ENOXAPARIN [Concomitant]
     Active Substance: ENOXAPARIN
  85. ENOXAPARIN [Concomitant]
     Active Substance: ENOXAPARIN
  86. ENOXAPARIN [Concomitant]
     Active Substance: ENOXAPARIN
  87. ENOXAPARIN [Concomitant]
     Active Substance: ENOXAPARIN
  88. ENOXAPARIN [Concomitant]
     Active Substance: ENOXAPARIN
  89. ENOXAPARIN [Concomitant]
     Active Substance: ENOXAPARIN
  90. ENOXAPARIN [Concomitant]
     Active Substance: ENOXAPARIN
  91. ENOXAPARIN [Concomitant]
     Active Substance: ENOXAPARIN
  92. ENOXAPARIN [Concomitant]
     Active Substance: ENOXAPARIN
  93. ENOXAPARIN [Concomitant]
     Active Substance: ENOXAPARIN
  94. ENOXAPARIN [Concomitant]
     Active Substance: ENOXAPARIN
  95. ENOXAPARIN [Concomitant]
     Active Substance: ENOXAPARIN
  96. ENOXAPARIN [Concomitant]
     Active Substance: ENOXAPARIN
  97. ENOXAPARIN [Concomitant]
     Active Substance: ENOXAPARIN
  98. ENOXAPARIN [Concomitant]
     Active Substance: ENOXAPARIN
  99. ENOXAPARIN [Concomitant]
     Active Substance: ENOXAPARIN
  100. ENOXAPARIN [Concomitant]
     Active Substance: ENOXAPARIN
  101. ENOXAPARIN [Concomitant]
     Active Substance: ENOXAPARIN
  102. ENOXAPARIN [Concomitant]
     Active Substance: ENOXAPARIN
  103. ENOXAPARIN [Concomitant]
     Active Substance: ENOXAPARIN
  104. ENOXAPARIN [Concomitant]
     Active Substance: ENOXAPARIN
  105. ENOXAPARIN [Concomitant]
     Active Substance: ENOXAPARIN
  106. ENOXAPARIN [Concomitant]
     Active Substance: ENOXAPARIN
  107. ENOXAPARIN [Concomitant]
     Active Substance: ENOXAPARIN
  108. ENOXAPARIN [Concomitant]
     Active Substance: ENOXAPARIN
  109. ENOXAPARIN [Concomitant]
     Active Substance: ENOXAPARIN
  110. ENOXAPARIN [Concomitant]
     Active Substance: ENOXAPARIN
  111. ENOXAPARIN [Concomitant]
     Active Substance: ENOXAPARIN
  112. ENOXAPARIN [Concomitant]
     Active Substance: ENOXAPARIN
  113. ENOXAPARIN [Concomitant]
     Active Substance: ENOXAPARIN
  114. ENOXAPARIN [Concomitant]
     Active Substance: ENOXAPARIN
  115. ENOXAPARIN [Concomitant]
     Active Substance: ENOXAPARIN
  116. ENOXAPARIN [Concomitant]
     Active Substance: ENOXAPARIN
  117. ENOXAPARIN [Concomitant]
     Active Substance: ENOXAPARIN
  118. ENOXAPARIN [Concomitant]
     Active Substance: ENOXAPARIN
  119. ENOXAPARIN [Concomitant]
     Active Substance: ENOXAPARIN
  120. ENOXAPARIN [Concomitant]
     Active Substance: ENOXAPARIN
  121. ENOXAPARIN [Concomitant]
     Active Substance: ENOXAPARIN
  122. ENOXAPARIN [Concomitant]
     Active Substance: ENOXAPARIN
  123. ENOXAPARIN [Concomitant]
     Active Substance: ENOXAPARIN
  124. ENOXAPARIN [Concomitant]
     Active Substance: ENOXAPARIN
  125. ENOXAPARIN [Concomitant]
     Active Substance: ENOXAPARIN
  126. ENOXAPARIN [Concomitant]
     Active Substance: ENOXAPARIN
  127. ENOXAPARIN [Concomitant]
     Active Substance: ENOXAPARIN
  128. ENOXAPARIN [Concomitant]
     Active Substance: ENOXAPARIN
  129. ENOXAPARIN [Concomitant]
     Active Substance: ENOXAPARIN
  130. ENOXAPARIN [Concomitant]
     Active Substance: ENOXAPARIN
  131. ENOXAPARIN [Concomitant]
     Active Substance: ENOXAPARIN
  132. ENOXAPARIN [Concomitant]
     Active Substance: ENOXAPARIN
  133. ENOXAPARIN [Concomitant]
     Active Substance: ENOXAPARIN
  134. ENOXAPARIN [Concomitant]
     Active Substance: ENOXAPARIN
  135. ENOXAPARIN [Concomitant]
     Active Substance: ENOXAPARIN
  136. ENOXAPARIN [Concomitant]
     Active Substance: ENOXAPARIN
  137. ENOXAPARIN [Concomitant]
     Active Substance: ENOXAPARIN
  138. ENOXAPARIN [Concomitant]
     Active Substance: ENOXAPARIN
  139. ENOXAPARIN [Concomitant]
     Active Substance: ENOXAPARIN
  140. ENOXAPARIN [Concomitant]
     Active Substance: ENOXAPARIN
  141. ENOXAPARIN [Concomitant]
     Active Substance: ENOXAPARIN
  142. ENOXAPARIN [Concomitant]
     Active Substance: ENOXAPARIN
  143. ENOXAPARIN [Concomitant]
     Active Substance: ENOXAPARIN
  144. ENOXAPARIN [Concomitant]
     Active Substance: ENOXAPARIN
  145. ENOXAPARIN [Concomitant]
     Active Substance: ENOXAPARIN
  146. ENOXAPARIN [Concomitant]
     Active Substance: ENOXAPARIN
  147. ENOXAPARIN [Concomitant]
     Active Substance: ENOXAPARIN
  148. ENOXAPARIN [Concomitant]
     Active Substance: ENOXAPARIN
  149. ENOXAPARIN [Concomitant]
     Active Substance: ENOXAPARIN
  150. ENOXAPARIN [Concomitant]
     Active Substance: ENOXAPARIN
  151. ENOXAPARIN [Concomitant]
     Active Substance: ENOXAPARIN
  152. ENOXAPARIN [Concomitant]
     Active Substance: ENOXAPARIN
  153. ENOXAPARIN [Concomitant]
     Active Substance: ENOXAPARIN
  154. ENOXAPARIN [Concomitant]
     Active Substance: ENOXAPARIN
  155. ENOXAPARIN [Concomitant]
     Active Substance: ENOXAPARIN
  156. ENOXAPARIN [Concomitant]
     Active Substance: ENOXAPARIN
  157. ENOXAPARIN [Concomitant]
     Active Substance: ENOXAPARIN
  158. ENOXAPARIN [Concomitant]
     Active Substance: ENOXAPARIN
  159. ENOXAPARIN [Concomitant]
     Active Substance: ENOXAPARIN
  160. ENOXAPARIN [Concomitant]
     Active Substance: ENOXAPARIN
  161. ENOXAPARIN [Concomitant]
     Active Substance: ENOXAPARIN
  162. ENOXAPARIN [Concomitant]
     Active Substance: ENOXAPARIN
  163. ENOXAPARIN [Concomitant]
     Active Substance: ENOXAPARIN
  164. ENOXAPARIN [Concomitant]
     Active Substance: ENOXAPARIN
  165. ENOXAPARIN [Concomitant]
     Active Substance: ENOXAPARIN
  166. ENOXAPARIN [Concomitant]
     Active Substance: ENOXAPARIN
  167. ENOXAPARIN [Concomitant]
     Active Substance: ENOXAPARIN
  168. ENOXAPARIN [Concomitant]
     Active Substance: ENOXAPARIN
  169. ENOXAPARIN [Concomitant]
     Active Substance: ENOXAPARIN
  170. ENOXAPARIN [Concomitant]
     Active Substance: ENOXAPARIN
  171. ENOXAPARIN [Concomitant]
     Active Substance: ENOXAPARIN
  172. ENOXAPARIN [Concomitant]
     Active Substance: ENOXAPARIN
  173. ENOXAPARIN [Concomitant]
     Active Substance: ENOXAPARIN
  174. ENOXAPARIN [Concomitant]
     Active Substance: ENOXAPARIN
  175. ENOXAPARIN [Concomitant]
     Active Substance: ENOXAPARIN
  176. ENOXAPARIN [Concomitant]
     Active Substance: ENOXAPARIN
  177. ENOXAPARIN [Concomitant]
     Active Substance: ENOXAPARIN
  178. ENOXAPARIN [Concomitant]
     Active Substance: ENOXAPARIN
  179. ENOXAPARIN [Concomitant]
     Active Substance: ENOXAPARIN
  180. ENOXAPARIN [Concomitant]
     Active Substance: ENOXAPARIN
  181. ENOXAPARIN [Concomitant]
     Active Substance: ENOXAPARIN
  182. ENOXAPARIN [Concomitant]
     Active Substance: ENOXAPARIN
  183. ENOXAPARIN [Concomitant]
     Active Substance: ENOXAPARIN
  184. ENOXAPARIN [Concomitant]
     Active Substance: ENOXAPARIN
  185. ENOXAPARIN [Concomitant]
     Active Substance: ENOXAPARIN
  186. ENOXAPARIN [Concomitant]
     Active Substance: ENOXAPARIN
  187. ENOXAPARIN [Concomitant]
     Active Substance: ENOXAPARIN
  188. ENOXAPARIN [Concomitant]
     Active Substance: ENOXAPARIN
  189. ENOXAPARIN [Concomitant]
     Active Substance: ENOXAPARIN
  190. ENOXAPARIN [Concomitant]
     Active Substance: ENOXAPARIN
  191. ENOXAPARIN [Concomitant]
     Active Substance: ENOXAPARIN
  192. ENOXAPARIN [Concomitant]
     Active Substance: ENOXAPARIN
  193. ENOXAPARIN [Concomitant]
     Active Substance: ENOXAPARIN
  194. ENOXAPARIN [Concomitant]
     Active Substance: ENOXAPARIN
  195. ENOXAPARIN [Concomitant]
     Active Substance: ENOXAPARIN
  196. ENOXAPARIN [Concomitant]
     Active Substance: ENOXAPARIN
  197. ENOXAPARIN [Concomitant]
     Active Substance: ENOXAPARIN
  198. ENOXAPARIN [Concomitant]
     Active Substance: ENOXAPARIN
  199. ENOXAPARIN [Concomitant]
     Active Substance: ENOXAPARIN
  200. ENOXAPARIN [Concomitant]
     Active Substance: ENOXAPARIN
  201. ENOXAPARIN [Concomitant]
     Active Substance: ENOXAPARIN
  202. ENOXAPARIN [Concomitant]
     Active Substance: ENOXAPARIN
  203. ENOXAPARIN [Concomitant]
     Active Substance: ENOXAPARIN
  204. ENOXAPARIN [Concomitant]
     Active Substance: ENOXAPARIN
  205. ENOXAPARIN [Concomitant]
     Active Substance: ENOXAPARIN
  206. ENOXAPARIN [Concomitant]
     Active Substance: ENOXAPARIN
  207. ENOXAPARIN [Concomitant]
     Active Substance: ENOXAPARIN
  208. ENOXAPARIN [Concomitant]
     Active Substance: ENOXAPARIN
  209. ENOXAPARIN [Concomitant]
     Active Substance: ENOXAPARIN
  210. ENOXAPARIN [Concomitant]
     Active Substance: ENOXAPARIN
  211. ENOXAPARIN [Concomitant]
     Active Substance: ENOXAPARIN
  212. ENOXAPARIN [Concomitant]
     Active Substance: ENOXAPARIN
  213. ENOXAPARIN [Concomitant]
     Active Substance: ENOXAPARIN
  214. ENOXAPARIN [Concomitant]
     Active Substance: ENOXAPARIN
  215. ENOXAPARIN [Concomitant]
     Active Substance: ENOXAPARIN
  216. ENOXAPARIN [Concomitant]
     Active Substance: ENOXAPARIN
  217. ENOXAPARIN [Concomitant]
     Active Substance: ENOXAPARIN
  218. ENOXAPARIN [Concomitant]
     Active Substance: ENOXAPARIN
  219. ENOXAPARIN [Concomitant]
     Active Substance: ENOXAPARIN
  220. ENOXAPARIN [Concomitant]
     Active Substance: ENOXAPARIN
  221. ENOXAPARIN [Concomitant]
     Active Substance: ENOXAPARIN
  222. ENOXAPARIN [Concomitant]
     Active Substance: ENOXAPARIN
  223. ENOXAPARIN [Concomitant]
     Active Substance: ENOXAPARIN
  224. ENOXAPARIN [Concomitant]
     Active Substance: ENOXAPARIN
  225. ENOXAPARIN [Concomitant]
     Active Substance: ENOXAPARIN
  226. ENOXAPARIN [Concomitant]
     Active Substance: ENOXAPARIN
  227. ENOXAPARIN [Concomitant]
     Active Substance: ENOXAPARIN
  228. ENOXAPARIN [Concomitant]
     Active Substance: ENOXAPARIN
  229. ENOXAPARIN [Concomitant]
     Active Substance: ENOXAPARIN
  230. ENOXAPARIN [Concomitant]
     Active Substance: ENOXAPARIN
  231. ENOXAPARIN [Concomitant]
     Active Substance: ENOXAPARIN
  232. ENOXAPARIN [Concomitant]
     Active Substance: ENOXAPARIN
  233. ENOXAPARIN [Concomitant]
     Active Substance: ENOXAPARIN
  234. ENOXAPARIN [Concomitant]
     Active Substance: ENOXAPARIN
  235. ENOXAPARIN [Concomitant]
     Active Substance: ENOXAPARIN
  236. ENOXAPARIN [Concomitant]
     Active Substance: ENOXAPARIN
  237. ENOXAPARIN [Concomitant]
     Active Substance: ENOXAPARIN
  238. ENOXAPARIN [Concomitant]
     Active Substance: ENOXAPARIN
  239. ENOXAPARIN [Concomitant]
     Active Substance: ENOXAPARIN
  240. ENOXAPARIN [Concomitant]
     Active Substance: ENOXAPARIN
  241. ENOXAPARIN [Concomitant]
     Active Substance: ENOXAPARIN
  242. ENOXAPARIN [Concomitant]
     Active Substance: ENOXAPARIN
  243. ENOXAPARIN [Concomitant]
     Active Substance: ENOXAPARIN
  244. ENOXAPARIN [Concomitant]
     Active Substance: ENOXAPARIN
  245. ENOXAPARIN [Concomitant]
     Active Substance: ENOXAPARIN
  246. ENOXAPARIN [Concomitant]
     Active Substance: ENOXAPARIN
  247. ENOXAPARIN [Concomitant]
     Active Substance: ENOXAPARIN
  248. ENOXAPARIN [Concomitant]
     Active Substance: ENOXAPARIN
  249. ENOXAPARIN [Concomitant]
     Active Substance: ENOXAPARIN
  250. ENOXAPARIN [Concomitant]
     Active Substance: ENOXAPARIN
  251. ENOXAPARIN [Concomitant]
     Active Substance: ENOXAPARIN
  252. ENOXAPARIN [Concomitant]
     Active Substance: ENOXAPARIN
  253. ENOXAPARIN [Concomitant]
     Active Substance: ENOXAPARIN
  254. ENOXAPARIN [Concomitant]
     Active Substance: ENOXAPARIN
  255. ENOXAPARIN [Concomitant]
     Active Substance: ENOXAPARIN
  256. ENOXAPARIN [Concomitant]
     Active Substance: ENOXAPARIN
  257. ENOXAPARIN [Concomitant]
     Active Substance: ENOXAPARIN
  258. ENOXAPARIN [Concomitant]
     Active Substance: ENOXAPARIN
  259. ENOXAPARIN [Concomitant]
     Active Substance: ENOXAPARIN
  260. ENOXAPARIN [Concomitant]
     Active Substance: ENOXAPARIN
  261. ENOXAPARIN [Concomitant]
     Active Substance: ENOXAPARIN
  262. ENOXAPARIN [Concomitant]
     Active Substance: ENOXAPARIN
  263. ENOXAPARIN [Concomitant]
     Active Substance: ENOXAPARIN
  264. ENOXAPARIN [Concomitant]
     Active Substance: ENOXAPARIN
  265. ENOXAPARIN [Concomitant]
     Active Substance: ENOXAPARIN
  266. ENOXAPARIN [Concomitant]
     Active Substance: ENOXAPARIN
  267. ENOXAPARIN [Concomitant]
     Active Substance: ENOXAPARIN
  268. ENOXAPARIN [Concomitant]
     Active Substance: ENOXAPARIN
  269. ENOXAPARIN [Concomitant]
     Active Substance: ENOXAPARIN
  270. ENOXAPARIN [Concomitant]
     Active Substance: ENOXAPARIN
  271. ENOXAPARIN [Concomitant]
     Active Substance: ENOXAPARIN
  272. ENOXAPARIN [Concomitant]
     Active Substance: ENOXAPARIN
  273. ENOXAPARIN [Concomitant]
     Active Substance: ENOXAPARIN
  274. ENOXAPARIN [Concomitant]
     Active Substance: ENOXAPARIN
  275. ENOXAPARIN [Concomitant]
     Active Substance: ENOXAPARIN
  276. ENOXAPARIN [Concomitant]
     Active Substance: ENOXAPARIN
  277. ENOXAPARIN [Concomitant]
     Active Substance: ENOXAPARIN
  278. ENOXAPARIN [Concomitant]
     Active Substance: ENOXAPARIN
  279. ENOXAPARIN [Concomitant]
     Active Substance: ENOXAPARIN
  280. ENOXAPARIN [Concomitant]
     Active Substance: ENOXAPARIN
  281. ENOXAPARIN [Concomitant]
     Active Substance: ENOXAPARIN
  282. ENOXAPARIN [Concomitant]
     Active Substance: ENOXAPARIN
  283. ENOXAPARIN [Concomitant]
     Active Substance: ENOXAPARIN
  284. ENOXAPARIN [Concomitant]
     Active Substance: ENOXAPARIN
  285. ENOXAPARIN [Concomitant]
     Active Substance: ENOXAPARIN
  286. ENOXAPARIN [Concomitant]
     Active Substance: ENOXAPARIN
  287. ENOXAPARIN [Concomitant]
     Active Substance: ENOXAPARIN
  288. ENOXAPARIN [Concomitant]
     Active Substance: ENOXAPARIN
  289. ENOXAPARIN [Concomitant]
     Active Substance: ENOXAPARIN
  290. ENOXAPARIN [Concomitant]
     Active Substance: ENOXAPARIN
  291. ENOXAPARIN [Concomitant]
     Active Substance: ENOXAPARIN
  292. ENOXAPARIN [Concomitant]
     Active Substance: ENOXAPARIN
  293. ENOXAPARIN [Concomitant]
     Active Substance: ENOXAPARIN
  294. ENOXAPARIN [Concomitant]
     Active Substance: ENOXAPARIN
  295. ENOXAPARIN [Concomitant]
     Active Substance: ENOXAPARIN
  296. ENOXAPARIN [Concomitant]
     Active Substance: ENOXAPARIN
  297. ENOXAPARIN [Concomitant]
     Active Substance: ENOXAPARIN
  298. ENOXAPARIN [Concomitant]
     Active Substance: ENOXAPARIN
  299. ENOXAPARIN [Concomitant]
     Active Substance: ENOXAPARIN
  300. ENOXAPARIN [Concomitant]
     Active Substance: ENOXAPARIN
  301. ENOXAPARIN [Concomitant]
     Active Substance: ENOXAPARIN
  302. ENOXAPARIN [Concomitant]
     Active Substance: ENOXAPARIN
  303. ENOXAPARIN [Concomitant]
     Active Substance: ENOXAPARIN
  304. ENOXAPARIN [Concomitant]
     Active Substance: ENOXAPARIN
  305. ENOXAPARIN [Concomitant]
     Active Substance: ENOXAPARIN
  306. ENOXAPARIN [Concomitant]
     Active Substance: ENOXAPARIN
  307. ENOXAPARIN [Concomitant]
     Active Substance: ENOXAPARIN
  308. ENOXAPARIN [Concomitant]
     Active Substance: ENOXAPARIN
  309. ENOXAPARIN [Concomitant]
     Active Substance: ENOXAPARIN
  310. ENOXAPARIN [Concomitant]
     Active Substance: ENOXAPARIN
  311. ENOXAPARIN [Concomitant]
     Active Substance: ENOXAPARIN
  312. ENOXAPARIN [Concomitant]
     Active Substance: ENOXAPARIN
  313. ENOXAPARIN [Concomitant]
     Active Substance: ENOXAPARIN
  314. ENOXAPARIN [Concomitant]
     Active Substance: ENOXAPARIN
  315. ENOXAPARIN [Concomitant]
     Active Substance: ENOXAPARIN
  316. ENOXAPARIN [Concomitant]
     Active Substance: ENOXAPARIN
  317. ENOXAPARIN [Concomitant]
     Active Substance: ENOXAPARIN
  318. ENOXAPARIN [Concomitant]
     Active Substance: ENOXAPARIN
  319. ENOXAPARIN [Concomitant]
     Active Substance: ENOXAPARIN
  320. ENOXAPARIN [Concomitant]
     Active Substance: ENOXAPARIN
  321. ENOXAPARIN [Concomitant]
     Active Substance: ENOXAPARIN
  322. ENOXAPARIN [Concomitant]
     Active Substance: ENOXAPARIN
  323. ENOXAPARIN [Concomitant]
     Active Substance: ENOXAPARIN
  324. ENOXAPARIN [Concomitant]
     Active Substance: ENOXAPARIN
  325. ENOXAPARIN [Concomitant]
     Active Substance: ENOXAPARIN
  326. ENOXAPARIN [Concomitant]
     Active Substance: ENOXAPARIN
  327. ENOXAPARIN [Concomitant]
     Active Substance: ENOXAPARIN
  328. ENOXAPARIN [Concomitant]
     Active Substance: ENOXAPARIN
  329. ENOXAPARIN [Concomitant]
     Active Substance: ENOXAPARIN
  330. ENOXAPARIN [Concomitant]
     Active Substance: ENOXAPARIN
  331. ENOXAPARIN [Concomitant]
     Active Substance: ENOXAPARIN
  332. ENOXAPARIN [Concomitant]
     Active Substance: ENOXAPARIN
  333. ENOXAPARIN [Concomitant]
     Active Substance: ENOXAPARIN
  334. ENOXAPARIN [Concomitant]
     Active Substance: ENOXAPARIN
  335. ENOXAPARIN [Concomitant]
     Active Substance: ENOXAPARIN
  336. ENOXAPARIN [Concomitant]
     Active Substance: ENOXAPARIN
  337. ENOXAPARIN [Concomitant]
     Active Substance: ENOXAPARIN
  338. ENOXAPARIN [Concomitant]
     Active Substance: ENOXAPARIN
  339. ENOXAPARIN [Concomitant]
     Active Substance: ENOXAPARIN
  340. ENOXAPARIN [Concomitant]
     Active Substance: ENOXAPARIN
  341. ENOXAPARIN [Concomitant]
     Active Substance: ENOXAPARIN
  342. ENOXAPARIN [Concomitant]
     Active Substance: ENOXAPARIN
  343. ENOXAPARIN [Concomitant]
     Active Substance: ENOXAPARIN
  344. ENOXAPARIN [Concomitant]
     Active Substance: ENOXAPARIN
  345. ENOXAPARIN [Concomitant]
     Active Substance: ENOXAPARIN
  346. ENOXAPARIN [Concomitant]
     Active Substance: ENOXAPARIN
  347. ENOXAPARIN [Concomitant]
     Active Substance: ENOXAPARIN
  348. ENOXAPARIN [Concomitant]
     Active Substance: ENOXAPARIN
  349. ENOXAPARIN [Concomitant]
     Active Substance: ENOXAPARIN
  350. ENOXAPARIN [Concomitant]
     Active Substance: ENOXAPARIN
  351. ENOXAPARIN [Concomitant]
     Active Substance: ENOXAPARIN
  352. ENOXAPARIN [Concomitant]
     Active Substance: ENOXAPARIN
  353. ENOXAPARIN [Concomitant]
     Active Substance: ENOXAPARIN
  354. ENOXAPARIN [Concomitant]
     Active Substance: ENOXAPARIN
  355. ENOXAPARIN [Concomitant]
     Active Substance: ENOXAPARIN
  356. ENOXAPARIN [Concomitant]
     Active Substance: ENOXAPARIN
  357. ENOXAPARIN [Concomitant]
     Active Substance: ENOXAPARIN
  358. ENOXAPARIN [Concomitant]
     Active Substance: ENOXAPARIN
  359. ENOXAPARIN [Concomitant]
     Active Substance: ENOXAPARIN
  360. ENOXAPARIN [Concomitant]
     Active Substance: ENOXAPARIN
  361. ENOXAPARIN [Concomitant]
     Active Substance: ENOXAPARIN
  362. ENOXAPARIN [Concomitant]
     Active Substance: ENOXAPARIN
  363. ENOXAPARIN [Concomitant]
     Active Substance: ENOXAPARIN
  364. ENOXAPARIN [Concomitant]
     Active Substance: ENOXAPARIN
  365. ENOXAPARIN [Concomitant]
     Active Substance: ENOXAPARIN
  366. ENOXAPARIN [Concomitant]
     Active Substance: ENOXAPARIN
  367. ENOXAPARIN [Concomitant]
     Active Substance: ENOXAPARIN
  368. ENOXAPARIN [Concomitant]
     Active Substance: ENOXAPARIN
  369. ENOXAPARIN [Concomitant]
     Active Substance: ENOXAPARIN
  370. ENOXAPARIN [Concomitant]
     Active Substance: ENOXAPARIN
  371. ENOXAPARIN [Concomitant]
     Active Substance: ENOXAPARIN
  372. ENOXAPARIN [Concomitant]
     Active Substance: ENOXAPARIN
  373. ENOXAPARIN [Concomitant]
     Active Substance: ENOXAPARIN
  374. ENOXAPARIN [Concomitant]
     Active Substance: ENOXAPARIN
  375. ENOXAPARIN [Concomitant]
     Active Substance: ENOXAPARIN
  376. ENOXAPARIN [Concomitant]
     Active Substance: ENOXAPARIN
  377. ENOXAPARIN [Concomitant]
     Active Substance: ENOXAPARIN
  378. ENOXAPARIN [Concomitant]
     Active Substance: ENOXAPARIN
  379. ENOXAPARIN [Concomitant]
     Active Substance: ENOXAPARIN
  380. ENOXAPARIN [Concomitant]
     Active Substance: ENOXAPARIN
  381. ENOXAPARIN [Concomitant]
     Active Substance: ENOXAPARIN
  382. ENOXAPARIN [Concomitant]
     Active Substance: ENOXAPARIN
  383. ENOXAPARIN [Concomitant]
     Active Substance: ENOXAPARIN
  384. ENOXAPARIN [Concomitant]
     Active Substance: ENOXAPARIN
  385. ENOXAPARIN [Concomitant]
     Active Substance: ENOXAPARIN
  386. ENOXAPARIN [Concomitant]
     Active Substance: ENOXAPARIN
  387. ENOXAPARIN [Concomitant]
     Active Substance: ENOXAPARIN
  388. ENOXAPARIN [Concomitant]
     Active Substance: ENOXAPARIN
  389. ENOXAPARIN [Concomitant]
     Active Substance: ENOXAPARIN
  390. ENOXAPARIN [Concomitant]
     Active Substance: ENOXAPARIN
  391. ENOXAPARIN [Concomitant]
     Active Substance: ENOXAPARIN
  392. ENOXAPARIN [Concomitant]
     Active Substance: ENOXAPARIN
  393. ENOXAPARIN [Concomitant]
     Active Substance: ENOXAPARIN
  394. ENOXAPARIN [Concomitant]
     Active Substance: ENOXAPARIN
  395. ENOXAPARIN [Concomitant]
     Active Substance: ENOXAPARIN
  396. ENOXAPARIN [Concomitant]
     Active Substance: ENOXAPARIN
  397. ENOXAPARIN [Concomitant]
     Active Substance: ENOXAPARIN
  398. ENOXAPARIN [Concomitant]
     Active Substance: ENOXAPARIN
  399. ENOXAPARIN [Concomitant]
     Active Substance: ENOXAPARIN
  400. ENOXAPARIN [Concomitant]
     Active Substance: ENOXAPARIN
  401. ENOXAPARIN [Concomitant]
     Active Substance: ENOXAPARIN
  402. ENOXAPARIN [Concomitant]
     Active Substance: ENOXAPARIN
  403. ENOXAPARIN [Concomitant]
     Active Substance: ENOXAPARIN
  404. ENOXAPARIN [Concomitant]
     Active Substance: ENOXAPARIN
  405. ENOXAPARIN [Concomitant]
     Active Substance: ENOXAPARIN
  406. ENOXAPARIN [Concomitant]
     Active Substance: ENOXAPARIN
  407. ENOXAPARIN [Concomitant]
     Active Substance: ENOXAPARIN
  408. ENOXAPARIN [Concomitant]
     Active Substance: ENOXAPARIN
  409. ENOXAPARIN [Concomitant]
     Active Substance: ENOXAPARIN
  410. ENOXAPARIN [Concomitant]
     Active Substance: ENOXAPARIN
  411. ENOXAPARIN [Concomitant]
     Active Substance: ENOXAPARIN
  412. ENOXAPARIN [Concomitant]
     Active Substance: ENOXAPARIN
  413. ENOXAPARIN [Concomitant]
     Active Substance: ENOXAPARIN
  414. ENOXAPARIN [Concomitant]
     Active Substance: ENOXAPARIN
  415. ENOXAPARIN [Concomitant]
     Active Substance: ENOXAPARIN
  416. ENOXAPARIN [Concomitant]
     Active Substance: ENOXAPARIN
  417. ENOXAPARIN [Concomitant]
     Active Substance: ENOXAPARIN
  418. ENOXAPARIN [Concomitant]
     Active Substance: ENOXAPARIN
  419. ENOXAPARIN [Concomitant]
     Active Substance: ENOXAPARIN
  420. ENOXAPARIN [Concomitant]
     Active Substance: ENOXAPARIN
  421. ENOXAPARIN [Concomitant]
     Active Substance: ENOXAPARIN
  422. ENOXAPARIN [Concomitant]
     Active Substance: ENOXAPARIN
  423. ENOXAPARIN [Concomitant]
     Active Substance: ENOXAPARIN
  424. ENOXAPARIN [Concomitant]
     Active Substance: ENOXAPARIN
  425. ENOXAPARIN [Concomitant]
     Active Substance: ENOXAPARIN
  426. ENOXAPARIN [Concomitant]
     Active Substance: ENOXAPARIN
  427. ENOXAPARIN [Concomitant]
     Active Substance: ENOXAPARIN
  428. ENOXAPARIN [Concomitant]
     Active Substance: ENOXAPARIN
  429. ENOXAPARIN [Concomitant]
     Active Substance: ENOXAPARIN
  430. ENOXAPARIN [Concomitant]
     Active Substance: ENOXAPARIN

REACTIONS (6)
  - Angioedema [Unknown]
  - Disease recurrence [Unknown]
  - Mental disorder [Unknown]
  - Emotional distress [Unknown]
  - Chronic spontaneous urticaria [Unknown]
  - Treatment failure [Unknown]
